FAERS Safety Report 5178976-7 (Version None)
Quarter: 2006Q4

REPORT INFORMATION
  Report Type: 
  Country: None (occurrence: None)
  Receive Date: 20061215
  Receipt Date: 20061215
  Transmission Date: 20070319
  Serious: Yes (Life-Threatening)
  Sender: FDA-Public Use
  Company Number: None

PATIENT
  Sex: Female
  Weight: 64.4108 kg

DRUGS (4)
  1. VECTIBIX [Suspect]
     Indication: COLON CANCER METASTATIC
     Dosage: 390 MG EVERY 2 WEEKS IV DRIP
     Route: 042
     Dates: start: 20061018, end: 20061122
  2. DIPHENHYDRAMINE HCL [Concomitant]
  3. SODIUM CHLORIDE [Concomitant]
  4. VECTIBIX [Concomitant]

REACTIONS (1)
  - HYPOMAGNESAEMIA [None]
